FAERS Safety Report 15496354 (Version 1)
Quarter: 2018Q4

REPORT INFORMATION
  Report Type: Spontaneous
  Country: US (occurrence: US)
  Receive Date: 20181014
  Receipt Date: 20181014
  Transmission Date: 20190205
  Serious: Yes (Other)
  Sender: FDA-Public Use
  Company Number: US-CELGENEUS-USA-20181002493

PATIENT
  Sex: Female

DRUGS (1)
  1. REVLIMID [Suspect]
     Active Substance: LENALIDOMIDE
     Indication: PLASMA CELL MYELOMA
     Dosage: 5 MILLIGRAM
     Route: 048
     Dates: start: 20180417

REACTIONS (7)
  - Fall [Unknown]
  - Diarrhoea [Unknown]
  - Dyspnoea [Unknown]
  - Syncope [Unknown]
  - Abdominal pain upper [Unknown]
  - Hot flush [Unknown]
  - Vision blurred [Unknown]
